FAERS Safety Report 19751410 (Version 3)
Quarter: 2021Q3

REPORT INFORMATION
  Report Type: Spontaneous
  Country: FR (occurrence: FR)
  Receive Date: 20210827
  Receipt Date: 20210909
  Transmission Date: 20211014
  Serious: Yes (Death, Life-Threatening)
  Sender: FDA-Public Use
  Company Number: FR-UCBSA-2021039483

PATIENT
  Age: 83 Year
  Sex: Female
  Weight: 58.9 kg

DRUGS (7)
  1. VIMPAT [Suspect]
     Active Substance: LACOSAMIDE
     Indication: PRODUCT USED FOR UNKNOWN INDICATION
     Dosage: 50MG BID AND 100MG BID
     Dates: start: 2017
  2. VIMPAT [Suspect]
     Active Substance: LACOSAMIDE
     Dosage: 50MG BID AND 100MG BID
     Dates: start: 2017
  3. VIMPAT [Suspect]
     Active Substance: LACOSAMIDE
     Dosage: 50MG BID AND 100MG BID
     Dates: start: 2017
  4. VIMPAT [Suspect]
     Active Substance: LACOSAMIDE
     Dosage: 50MG BID AND 100MG BID
     Dates: start: 2017
  5. DOLIPRANE [Concomitant]
     Active Substance: ACETAMINOPHEN
     Indication: PRODUCT USED FOR UNKNOWN INDICATION
     Dosage: 150 MILLIGRAM, 2X/DAY (BID)
     Dates: start: 2017
  6. TEMESTA [ASTEMIZOLE] [Concomitant]
     Active Substance: ASTEMIZOLE
     Indication: PRODUCT USED FOR UNKNOWN INDICATION
     Dosage: UNK
  7. ELIQUIS [Concomitant]
     Active Substance: APIXABAN
     Indication: PRODUCT USED FOR UNKNOWN INDICATION
     Dosage: UNK

REACTIONS (6)
  - Seizure [Unknown]
  - Syncope [Unknown]
  - Cardiac arrest [Fatal]
  - Oxygen saturation decreased [Unknown]
  - Haematoma [Unknown]
  - Asthenia [Unknown]

NARRATIVE: CASE EVENT DATE: 20210814
